FAERS Safety Report 6733784-8 (Version None)
Quarter: 2010Q2

REPORT INFORMATION
  Report Type: 
  Country: None (occurrence: None)
  Receive Date: 20100518
  Receipt Date: 20100506
  Transmission Date: 20101027
  Serious: Yes (Congenital Anomaly, Other)
  Sender: FDA-Public Use
  Company Number: 7004104

PATIENT

DRUGS (5)
  1. REBIF [Suspect]
     Indication: MULTIPLE SCLEROSIS
     Dosage: 44 MCG, TRANSPLACENTAL
     Route: 064
     Dates: start: 20090301, end: 20100315
  2. CITALOPRAM HYDROBROMIDE [Suspect]
     Indication: DEPRESSION
     Dates: end: 20100101
  3. ZOLOFT [Concomitant]
  4. ATENOLOL [Concomitant]
  5. TYLENOL (PARACETAMOL) [Concomitant]

REACTIONS (4)
  - ABORTION SPONTANEOUS [None]
  - MATERNAL DRUGS AFFECTING FOETUS [None]
  - PLACENTAL TRANSFUSION SYNDROME [None]
  - TRISOMY 21 [None]
